FAERS Safety Report 24984928 (Version 3)
Quarter: 2025Q2

REPORT INFORMATION
  Report Type: Spontaneous
  Country: DE (occurrence: DE)
  Receive Date: 20250219
  Receipt Date: 20250416
  Transmission Date: 20250717
  Serious: Yes (Hospitalization, Other)
  Sender: RANBAXY
  Company Number: DE-SUN PHARMACEUTICAL INDUSTRIES LTD-2025RR-495896

PATIENT
  Age: 47 Year
  Sex: Female

DRUGS (5)
  1. TILDRAKIZUMAB [Suspect]
     Active Substance: TILDRAKIZUMAB
     Indication: Psoriasis
     Route: 065
     Dates: start: 20240815
  2. TILDRAKIZUMAB [Suspect]
     Active Substance: TILDRAKIZUMAB
     Route: 065
     Dates: start: 20050204
  3. TILDRAKIZUMAB [Suspect]
     Active Substance: TILDRAKIZUMAB
     Route: 065
     Dates: start: 20240912
  4. LEVOTHYROXINE SODIUM [Concomitant]
     Active Substance: LEVOTHYROXINE SODIUM
     Indication: Product used for unknown indication
     Dosage: 50 MILLIGRAM, DAILY, 1X DAILY
     Route: 065
  5. BISOPROLOL [Concomitant]
     Active Substance: BISOPROLOL
     Indication: Product used for unknown indication
     Dosage: 2.5 MILLIGRAM, DAILY, 1X DAILY
     Route: 065

REACTIONS (4)
  - Arteriospasm coronary [Recovered/Resolved]
  - Arteriosclerosis coronary artery [Recovered/Resolved]
  - Hypertension [Recovered/Resolved]
  - Treatment delayed [Recovered/Resolved]

NARRATIVE: CASE EVENT DATE: 20241120
